FAERS Safety Report 4822732-3 (Version None)
Quarter: 2005Q4

REPORT INFORMATION
  Report Type: 
  Country: None (occurrence: None)
  Receive Date: 20051107
  Receipt Date: 20051107
  Transmission Date: 20060501
  Serious: Yes (Death)
  Sender: FDA-Public Use
  Company Number: None

PATIENT
  Age: 20 Year
  Sex: Female
  Weight: 51 kg

DRUGS (3)
  1. BOSENTAN [Suspect]
     Indication: PULMONARY HYPERTENSION
     Dosage: 62.5 MG BID PO
     Route: 048
     Dates: start: 20050613, end: 20050912
  2. ACETAMINOPHEN [Suspect]
     Indication: MALAISE
     Dates: start: 20050817, end: 20050907
  3. ACETAMINOPHEN [Suspect]
     Indication: PYREXIA
     Dates: start: 20050817, end: 20050907

REACTIONS (17)
  - ABDOMINAL DISTENSION [None]
  - APLASIA PURE RED CELL [None]
  - COAGULOPATHY [None]
  - DIARRHOEA [None]
  - DYSPNOEA [None]
  - DYSPNOEA EXERTIONAL [None]
  - EPISTAXIS [None]
  - HEPATIC CIRRHOSIS [None]
  - HEPATIC NEOPLASM [None]
  - HEPATITIS [None]
  - HISTIOCYTOSIS HAEMATOPHAGIC [None]
  - HYPOTENSION [None]
  - JAUNDICE [None]
  - LETHARGY [None]
  - SEPSIS [None]
  - WHITE BLOOD CELL COUNT DECREASED [None]
  - WHITE BLOOD CELL COUNT INCREASED [None]
